FAERS Safety Report 7318505-2 (Version None)
Quarter: 2011Q1

REPORT INFORMATION
  Report Type: 
  Country: None (occurrence: None)
  Receive Date: 20110223
  Receipt Date: 20110223
  Transmission Date: 20110831
  Serious: Yes (Hospitalization)
  Sender: FDA-Public Use
  Company Number: None

PATIENT
  Age: 66 Year
  Sex: Male
  Weight: 87 kg

DRUGS (1)
  1. NITROFURANTOIN [Suspect]
     Indication: PROPHYLAXIS URINARY TRACT INFECTION
     Dosage: 1 TAB EVERY DAY PO
     Route: 048
     Dates: start: 20100204, end: 20101208

REACTIONS (6)
  - HEPATOMEGALY [None]
  - HEPATIC CIRRHOSIS [None]
  - LIVER INJURY [None]
  - HEPATIC FIBROSIS [None]
  - ASCITES [None]
  - CHOLESTASIS [None]
